FAERS Safety Report 6599116-3 (Version None)
Quarter: 2010Q1

REPORT INFORMATION
  Report Type: 
  Country: None (occurrence: None)
  Receive Date: 20100224
  Receipt Date: 20091029
  Transmission Date: 20100710
  Serious: No
  Sender: FDA-Public Use
  Company Number: US-BRISTOL-MYERS SQUIBB COMPANY-14831978

PATIENT
  Age: 58 Year
  Sex: Female

DRUGS (2)
  1. METFORMIN HYDROCHLORIDE [Suspect]
     Dates: end: 20090101
  2. LANTUS [Suspect]
     Indication: TYPE 2 DIABETES MELLITUS
     Dosage: SOLUTION FOR INJ 1DF=40U
     Route: 058
     Dates: start: 20080101, end: 20090101

REACTIONS (2)
  - DIARRHOEA [None]
  - MALAISE [None]
